FAERS Safety Report 21759219 (Version 3)
Quarter: 2023Q1

REPORT INFORMATION
  Report Type: Spontaneous
  Country: FR (occurrence: FR)
  Receive Date: 20221221
  Receipt Date: 20230330
  Transmission Date: 20230418
  Serious: Yes (Death, Congenital Anomaly, Other)
  Sender: FDA-Public Use
  Company Number: FR-ADDMEDICA-2022000106

PATIENT
  Sex: Female
  Weight: 1.37 kg

DRUGS (5)
  1. SIKLOS [Suspect]
     Active Substance: HYDROXYUREA
     Indication: Product used for unknown indication
     Route: 064
     Dates: start: 202205, end: 20220906
  2. PENICILLIN V [Concomitant]
     Active Substance: PENICILLIN V
     Indication: Product used for unknown indication
     Route: 064
     Dates: start: 2022, end: 2022
  3. FOLIC ACID [Concomitant]
     Active Substance: FOLIC ACID
     Indication: Product used for unknown indication
     Route: 064
     Dates: start: 2022, end: 20221126
  4. CHOLECALCIFEROL [Concomitant]
     Active Substance: CHOLECALCIFEROL
     Indication: Product used for unknown indication
     Route: 064
     Dates: start: 2022, end: 2022
  5. ACETAMINOPHEN [Concomitant]
     Active Substance: ACETAMINOPHEN
     Indication: Analgesic therapy
     Route: 064
     Dates: start: 2022, end: 2022

REACTIONS (4)
  - Gastroschisis [Fatal]
  - Foetal growth restriction [Fatal]
  - Premature baby [Fatal]
  - Foetal exposure during pregnancy [Recovered/Resolved]

NARRATIVE: CASE EVENT DATE: 20220101
